FAERS Safety Report 16463149 (Version 2)
Quarter: 2019Q3

REPORT INFORMATION
  Report Type: Spontaneous
  Country: US (occurrence: US)
  Receive Date: 20190621
  Receipt Date: 20190822
  Transmission Date: 20191004
  Serious: No
  Sender: FDA-Public Use
  Company Number: US-PFIZER INC-2019265730

PATIENT
  Age: 85 Year
  Sex: Female

DRUGS (2)
  1. XELJANZ [Suspect]
     Active Substance: TOFACITINIB CITRATE
     Dosage: 5 MG, DAILY
  2. XELJANZ [Suspect]
     Active Substance: TOFACITINIB CITRATE
     Indication: RHEUMATOID ARTHRITIS
     Dosage: 5 MG, 1X/DAY
     Dates: start: 20181106

REACTIONS (5)
  - Sensitivity to weather change [Unknown]
  - Drug ineffective [Unknown]
  - Urinary tract infection [Recovering/Resolving]
  - Musculoskeletal pain [Unknown]
  - Arthralgia [Unknown]
